FAERS Safety Report 24593815 (Version 1)
Quarter: 2024Q4

REPORT INFORMATION
  Report Type: Spontaneous
  Country: FR (occurrence: FR)
  Receive Date: 20241108
  Receipt Date: 20241108
  Transmission Date: 20250114
  Serious: Yes (Other)
  Sender: PFIZER
  Company Number: None

PATIENT
  Age: 63 Year
  Sex: Female

DRUGS (4)
  1. ROCURONIUM BROMIDE [Suspect]
     Active Substance: ROCURONIUM BROMIDE
     Indication: Antibiotic therapy
     Dosage: 1 DF, 1X/DAY
     Route: 023
     Dates: start: 20240708, end: 2024
  2. ATRACURIUM BESYLATE [Suspect]
     Active Substance: ATRACURIUM BESYLATE
     Indication: Antibiotic therapy
     Dosage: 1 DF, 1X/DAY
     Route: 023
     Dates: start: 20240708, end: 2024
  3. SUCCINYLCHOLINE CHLORIDE [Suspect]
     Active Substance: SUCCINYLCHOLINE CHLORIDE
     Indication: Antibiotic therapy
     Dosage: 1 DF, 1X/DAY
     Route: 023
     Dates: start: 20240708, end: 2024
  4. CISATRACURIUM [Suspect]
     Active Substance: CISATRACURIUM
     Indication: Antibiotic therapy
     Dosage: 1 DF, 1X/DAY
     Route: 023
     Dates: start: 20240708, end: 2024

REACTIONS (2)
  - Skin test positive [Recovered/Resolved]
  - Off label use [Unknown]

NARRATIVE: CASE EVENT DATE: 20240708
